FAERS Safety Report 5079772-1 (Version None)
Quarter: 2006Q3

REPORT INFORMATION
  Report Type: 
  Country: None (occurrence: None)
  Receive Date: 20060815
  Receipt Date: 19950919
  Transmission Date: 20061208
  Serious: No
  Sender: FDA-Public Use
  Company Number: C9509190037

PATIENT
  Sex: Female

DRUGS (1)
  1. TAGAMET HB [Suspect]
     Route: 048

REACTIONS (1)
  - DYSGEUSIA [None]
